FAERS Safety Report 5167377-3 (Version None)
Quarter: 2006Q4

REPORT INFORMATION
  Report Type: 
  Country: None (occurrence: None)
  Receive Date: 20061130
  Receipt Date: 20061117
  Transmission Date: 20070319
  Serious: Yes (Hospitalization)
  Sender: FDA-Public Use
  Company Number: 2006PV023222

PATIENT
  Age: 49 Year
  Sex: Female
  Weight: 83.0083 kg

DRUGS (12)
  1. BYETTA [Suspect]
     Indication: DIABETES MELLITUS NON-INSULIN-DEPENDENT
     Dosage: SEE IMAGE
     Route: 058
     Dates: start: 20050101, end: 20050101
  2. BYETTA [Suspect]
     Indication: DIABETES MELLITUS NON-INSULIN-DEPENDENT
     Dosage: SEE IMAGE
     Route: 058
     Dates: start: 20050101
  3. METFORMIN [Concomitant]
  4. FIORICET [Concomitant]
  5. REGLAN [Concomitant]
  6. HYDROCHLOROTHIAZIDE [Concomitant]
  7. CARTIA XT [Concomitant]
  8. LYRICA [Concomitant]
  9. SINGULAIR [Concomitant]
  10. PREVACID [Concomitant]
  11. ZOLOFT [Concomitant]
  12. PLAVIX [Concomitant]

REACTIONS (4)
  - ANXIETY [None]
  - BLOOD GLUCOSE INCREASED [None]
  - CARDIAC FAILURE [None]
  - WEIGHT DECREASED [None]
